FAERS Safety Report 4480073-0 (Version None)
Quarter: 2004Q4

REPORT INFORMATION
  Report Type: 
  Country: None (occurrence: None)
  Receive Date: 20041018
  Receipt Date: 20040916
  Transmission Date: 20050328
  Serious: Yes (Hospitalization)
  Sender: FDA-Public Use
  Company Number: 2004067360

PATIENT
  Sex: Female
  Weight: 63.5036 kg

DRUGS (1)
  1. ZOLOFT [Suspect]
     Indication: MAJOR DEPRESSION
     Dosage: 100 MG

REACTIONS (6)
  - BIPOLAR I DISORDER [None]
  - HOMICIDAL IDEATION [None]
  - LOSS OF EMPLOYMENT [None]
  - PARANOIA [None]
  - THEFT [None]
  - THERAPEUTIC RESPONSE DECREASED [None]
